FAERS Safety Report 6175124-1 (Version None)
Quarter: 2009Q2

REPORT INFORMATION
  Report Type: 
  Country: None (occurrence: None)
  Receive Date: 20090430
  Receipt Date: 20081226
  Transmission Date: 20091009
  Serious: Yes (Other)
  Sender: FDA-Public Use
  Company Number: US-ASTRAZENECA-2008UW28789

PATIENT
  Age: 55 Year
  Sex: Male

DRUGS (3)
  1. NEXIUM [Suspect]
     Route: 048
  2. ANTIHYPERTENSIVE [Concomitant]
     Indication: HYPERTENSION
  3. WATER PILLS [Concomitant]

REACTIONS (1)
  - CHEST PAIN [None]
